APPROVED DRUG PRODUCT: SEVOFLURANE
Active Ingredient: SEVOFLURANE
Strength: 100%
Dosage Form/Route: LIQUID;INHALATION
Application: A075895 | Product #001 | TE Code: AN
Applicant: BAXTER HEALTHCARE CORP
Approved: Jul 2, 2002 | RLD: No | RS: No | Type: RX